FAERS Safety Report 20500268 (Version 1)
Quarter: 2022Q1

REPORT INFORMATION
  Report Type: Report from Study
  Country: FR (occurrence: FR)
  Receive Date: 20220222
  Receipt Date: 20220222
  Transmission Date: 20220423
  Serious: Yes (Other)
  Sender: FDA-Public Use
  Company Number: FR-SERVIER-S22001651

PATIENT

DRUGS (8)
  1. PEGASPARGASE [Suspect]
     Active Substance: PEGASPARGASE
     Indication: Acute lymphocytic leukaemia
     Dosage: 3100 IU ON D12
     Route: 042
     Dates: start: 20211120, end: 20211120
  2. TN UNSPECIFIED [Concomitant]
     Indication: Acute lymphocytic leukaemia
     Dosage: 75 MG ON D1 TO D7
     Route: 048
     Dates: start: 20211109, end: 20211115
  3. TN UNSPECIFIED [Concomitant]
     Indication: Acute lymphocytic leukaemia
     Dosage: 15 MG ON D1, D13, AND D24
     Route: 037
     Dates: start: 20211109, end: 20211202
  4. TN UNSPECIFIED [Concomitant]
     Indication: Acute lymphocytic leukaemia
     Dosage: 75 MG ON D1 TO D7
     Route: 048
     Dates: start: 20211115, end: 20211116
  5. TN UNSPECIFIED [Concomitant]
     Indication: Acute lymphocytic leukaemia
     Dosage: 1.8 MG ON D8, D15, D22, AND D29
     Route: 042
     Dates: start: 20211116, end: 20211207
  6. TN UNSPECIFIED [Concomitant]
     Indication: Acute lymphocytic leukaemia
     Dosage: 37 MG ON D8, D15, D22, AND D29
     Route: 042
     Dates: start: 20211116, end: 20211207
  7. TN UNSPECIFIED [Concomitant]
     Indication: Acute lymphocytic leukaemia
     Dosage: 30 MG ON D13 AND D23
     Route: 037
     Dates: start: 20211121, end: 20211202
  8. TN UNSPECIFIED [Concomitant]
     Indication: Acute lymphocytic leukaemia
     Dosage: 15 MG ON D13 AND D23
     Route: 037
     Dates: start: 20211121, end: 20211202

REACTIONS (1)
  - Febrile bone marrow aplasia [Recovering/Resolving]

NARRATIVE: CASE EVENT DATE: 20211218
